FAERS Safety Report 4388048-7 (Version None)
Quarter: 2004Q2

REPORT INFORMATION
  Report Type: 
  Country: None (occurrence: None)
  Receive Date: 20040607
  Receipt Date: 20030701
  Transmission Date: 20050107
  Serious: Yes (Other)
  Sender: FDA-Public Use
  Company Number: 328736

PATIENT
  Sex: Male
  Weight: 3.2 kg

DRUGS (1)
  1. ACCUTANE [Suspect]
     Dosage: 30 MG DAILY; ORAL
     Route: 048
     Dates: start: 20011015, end: 20020515

REACTIONS (4)
  - NO ADVERSE DRUG EFFECT [None]
  - NO ADVERSE EFFECT [None]
  - NORMAL NEWBORN [None]
  - PREGNANCY [None]
